FAERS Safety Report 18554037 (Version 2)
Quarter: 2020Q4

REPORT INFORMATION
  Report Type: Spontaneous
  Country: CA (occurrence: CA)
  Receive Date: 20201127
  Receipt Date: 20201130
  Transmission Date: 20210114
  Serious: Yes (Other)
  Sender: FDA-Public Use
  Company Number: CA-PFIZER INC-2020467528

PATIENT
  Age: 73 Year
  Sex: Female

DRUGS (2)
  1. ADVIL ARTHRITIS PAIN [Suspect]
     Active Substance: IBUPROFEN
     Indication: ARTHRITIS
  2. ADVIL ARTHRITIS PAIN [Suspect]
     Active Substance: IBUPROFEN
     Indication: SPONDYLITIS
     Dosage: UNK
     Dates: start: 20201121, end: 20201123

REACTIONS (3)
  - Product size issue [Unknown]
  - Product physical issue [Unknown]
  - Foreign body in throat [Unknown]

NARRATIVE: CASE EVENT DATE: 202011
